FAERS Safety Report 6209940-4 (Version None)
Quarter: 2009Q2

REPORT INFORMATION
  Report Type: 
  Country: None (occurrence: None)
  Receive Date: 20090528
  Receipt Date: 20090528
  Transmission Date: 20091009
  Serious: Yes (Life-Threatening, Hospitalization, Other)
  Sender: FDA-Public Use
  Company Number: None

PATIENT
  Age: 75 Year
  Sex: Male
  Weight: 101.6057 kg

DRUGS (2)
  1. LYRICA [Suspect]
     Indication: FEELING HOT
     Dosage: 1 CAPSULE 150 MG TWICE A DAY
     Dates: start: 20090301, end: 20090527
  2. LYRICA [Suspect]
     Indication: NERVE INJURY
     Dosage: 1 CAPSULE 150 MG TWICE A DAY
     Dates: start: 20090301, end: 20090527

REACTIONS (7)
  - CONVULSION [None]
  - DRUG INEFFECTIVE [None]
  - EJACULATION DISORDER [None]
  - HEAD INJURY [None]
  - MYALGIA [None]
  - OEDEMA PERIPHERAL [None]
  - SEXUAL DYSFUNCTION [None]
